FAERS Safety Report 5053598-7 (Version None)
Quarter: 2006Q3

REPORT INFORMATION
  Report Type: 
  Country: None (occurrence: None)
  Receive Date: 20060718
  Receipt Date: 20060707
  Transmission Date: 20061208
  Serious: Yes (Other)
  Sender: FDA-Public Use
  Company Number: PHEH2006US08821

PATIENT

DRUGS (1)
  1. ZOMETA [Suspect]

REACTIONS (1)
  - PANCREATITIS [None]
